FAERS Safety Report 20558534 (Version 1)
Quarter: 2022Q1

REPORT INFORMATION
  Report Type: Spontaneous
  Country: US (occurrence: US)
  Receive Date: 20220307
  Receipt Date: 20220307
  Transmission Date: 20220423
  Serious: Yes (Death, Other)
  Sender: FDA-Public Use
  Company Number: US-SA-SAC20220304001943

PATIENT
  Age: 74 Year
  Sex: Female

DRUGS (1)
  1. ZANTAC [Suspect]
     Active Substance: RANITIDINE HYDROCHLORIDE
     Indication: Dyspepsia
     Dosage: UNKNOWN AT THIS TIME
     Dates: start: 198501, end: 201801

REACTIONS (3)
  - Lung neoplasm malignant [Fatal]
  - Cervix carcinoma stage IV [Not Recovered/Not Resolved]
  - Bone cancer [Not Recovered/Not Resolved]

NARRATIVE: CASE EVENT DATE: 20200101
